FAERS Safety Report 8482451-1 (Version None)
Quarter: 2012Q3

REPORT INFORMATION
  Report Type: 
  Country: None (occurrence: None)
  Receive Date: 20120702
  Receipt Date: 20120621
  Transmission Date: 20120928
  Serious: Yes (Hospitalization)
  Sender: FDA-Public Use
  Company Number: FR-GLAXOSMITHKLINE-B0809678A

PATIENT
  Age: 66 Year
  Sex: Male

DRUGS (8)
  1. KARDEGIC [Suspect]
     Indication: PRODUCT USED FOR UNKNOWN INDICATION
     Dosage: 75MG PER DAY
     Route: 048
  2. NEXIUM [Concomitant]
     Dosage: 20MG AT NIGHT
     Route: 065
  3. PLAVIX [Suspect]
     Indication: PRODUCT USED FOR UNKNOWN INDICATION
     Dosage: 75MG PER DAY
     Route: 048
  4. BISOPROLOL FUMARATE [Concomitant]
     Route: 065
  5. ACARBOSE [Concomitant]
     Dosage: 1000MG TWICE PER DAY
     Route: 065
  6. PREDNISOLONE [Concomitant]
     Dosage: 40MG PER DAY
     Route: 065
  7. ARIXTRA [Suspect]
     Indication: THROMBOPHLEBITIS
     Dosage: 5MG PER DAY
     Route: 058
     Dates: start: 20120201, end: 20120430
  8. AMLODIPINE BESYLATE [Concomitant]
     Dosage: 5MG PER DAY
     Route: 065

REACTIONS (3)
  - HAEMATOMA [None]
  - THROMBOCYTOPENIA [None]
  - INCORRECT DRUG ADMINISTRATION DURATION [None]
